FAERS Safety Report 10301458 (Version 1)
Quarter: 2014Q3

REPORT INFORMATION
  Report Type: Spontaneous
  Country: IT (occurrence: None)
  Receive Date: 20140708
  Receipt Date: 20140708
  Transmission Date: 20150326
  Serious: Yes (Other)
  Sender: FDA-Public Use
  Company Number: 2417862

PATIENT
  Age: 49 Year
  Sex: Female
  Weight: 60 kg

DRUGS (5)
  1. DOCETAXEL [Suspect]
     Active Substance: DOCETAXEL
     Indication: INVASIVE DUCTAL BREAST CARCINOMA
     Route: 042
     Dates: start: 20131120, end: 20131120
  2. BISOPROLOL HEMIFUMARATE [Concomitant]
     Active Substance: BISOPROLOL
  3. CARDIOASPIRIN [Concomitant]
     Active Substance: ASPIRIN
  4. HERCEPTIN [Suspect]
     Active Substance: TRASTUZUMAB
     Indication: INVASIVE DUCTAL BREAST CARCINOMA
     Dosage: 360 MG CYCLICAL INTRAVENOUS
     Route: 042
     Dates: start: 20131120, end: 20140523
  5. ZOMIG [Concomitant]
     Active Substance: ZOLMITRIPTAN

REACTIONS (2)
  - Injection site thrombosis [None]
  - Infusion related reaction [None]

NARRATIVE: CASE EVENT DATE: 20131120
